FAERS Safety Report 9562994 (Version 1)
Quarter: 2013Q3

REPORT INFORMATION
  Report Type: Spontaneous
  Country: US (occurrence: US)
  Receive Date: 20130927
  Receipt Date: 20130927
  Transmission Date: 20140515
  Serious: Yes (Other)
  Sender: FDA-Public Use
  Company Number: US-PFIZER INC-2013278032

PATIENT
  Sex: Male

DRUGS (1)
  1. LYRICA [Suspect]
     Indication: HERPES ZOSTER
     Dosage: UNK

REACTIONS (10)
  - Drug hypersensitivity [Unknown]
  - Dyspnoea [Unknown]
  - Lip swelling [Unknown]
  - Eye swelling [Unknown]
  - Swelling face [Unknown]
  - Local swelling [Unknown]
  - Rash generalised [Unknown]
  - Erythema [Unknown]
  - Pain [Unknown]
  - Pruritus [Unknown]
